FAERS Safety Report 16310651 (Version 1)
Quarter: 2019Q2

REPORT INFORMATION
  Report Type: Spontaneous
  Country: DE (occurrence: DE)
  Receive Date: 20190514
  Receipt Date: 20190514
  Transmission Date: 20190711
  Serious: No
  Sender: FDA-Public Use
  Company Number: DE-MERZ NORTH AMERICA, INC.-19MRZ-00215

PATIENT
  Age: 45 Year
  Sex: Female

DRUGS (8)
  1. XEOMIN [Suspect]
     Active Substance: INCOBOTULINUMTOXINA
     Indication: SKIN WRINKLING
     Dosage: 17 UNITS
     Dates: start: 20190412, end: 20190412
  2. HYPERICUM PERFORATUM [Concomitant]
     Active Substance: HYPERICUM PERFORATUM
     Indication: PRODUCT USED FOR UNKNOWN INDICATION
     Dosage: UNKNOWN
  3. XEOMIN [Suspect]
     Active Substance: INCOBOTULINUMTOXINA
     Dosage: 16 UNITS
     Dates: start: 20180830, end: 20180830
  4. XEOMIN [Suspect]
     Active Substance: INCOBOTULINUMTOXINA
     Dosage: 26 UNITS
     Dates: start: 20161013, end: 20161013
  5. XEOMIN [Suspect]
     Active Substance: INCOBOTULINUMTOXINA
     Dosage: 26 UNITS
     Dates: start: 20150520, end: 20150520
  6. XEOMIN [Suspect]
     Active Substance: INCOBOTULINUMTOXINA
     Indication: SKIN COSMETIC PROCEDURE
     Dosage: 16 UNITS
     Dates: start: 20181214, end: 20181214
  7. LORAZEPAM. [Concomitant]
     Active Substance: LORAZEPAM
     Indication: AEROPHOBIA
     Dosage: 1 DOSAGE FORM
     Dates: start: 20190413, end: 20190413
  8. IBUPROFEN. [Concomitant]
     Active Substance: IBUPROFEN
     Indication: HEADACHE
     Dosage: 1 DOSAGE FORM
     Dates: start: 201904, end: 201904

REACTIONS (1)
  - Angioedema [Recovering/Resolving]

NARRATIVE: CASE EVENT DATE: 20190417
